FAERS Safety Report 6168448-5 (Version None)
Quarter: 2009Q2

REPORT INFORMATION
  Report Type: 
  Country: None (occurrence: None)
  Receive Date: 20090427
  Receipt Date: 20090417
  Transmission Date: 20091009
  Serious: Yes (Hospitalization)
  Sender: FDA-Public Use
  Company Number: A0761162A

PATIENT
  Age: 56 Year
  Sex: Male
  Weight: 98.6 kg

DRUGS (2)
  1. AVANDIA [Suspect]
     Dosage: 8MG PER DAY
     Route: 048
     Dates: start: 20060701, end: 20070620
  2. GEMFIBROZIL [Concomitant]

REACTIONS (3)
  - AORTIC ANEURYSM [None]
  - HEART INJURY [None]
  - ISCHAEMIC STROKE [None]
